FAERS Safety Report 8747306 (Version 2)
Quarter: 2012Q4

REPORT INFORMATION
  Report Type: 
  Country: US (occurrence: US)
  Receive Date: 20120827
  Receipt Date: 20121001
  Transmission Date: 20130627
  Serious: Yes (Hospitalization, Other)
  Sender: FDA-Public Use
  Company Number: US-AMGEN-USASP2012053447

PATIENT
  Age: 66 Year
  Sex: Female
  Weight: 76.64 kg

DRUGS (3)
  1. PROCRIT [Suspect]
     Indication: ANAEMIA
     Dosage: UNK UNK, q2wk
     Route: 058
     Dates: start: 2001, end: 2009
  2. PROCRIT [Suspect]
     Dosage: 20000 IU, qwk
     Dates: start: 20120918
  3. EXJADE [Concomitant]
     Dosage: UNK

REACTIONS (6)
  - Coronary artery occlusion [Recovered/Resolved]
  - Diabetes mellitus [Not Recovered/Not Resolved]
  - Blood count abnormal [Recovered/Resolved]
  - Anaemia [Unknown]
  - Alopecia [Not Recovered/Not Resolved]
  - Iron overload [Recovered/Resolved]
